FAERS Safety Report 7299507-1 (Version None)
Quarter: 2011Q1

REPORT INFORMATION
  Report Type: 
  Country: None (occurrence: None)
  Receive Date: 20110217
  Receipt Date: 20110207
  Transmission Date: 20110831
  Serious: Yes (Other)
  Sender: FDA-Public Use
  Company Number: AR-ELI_LILLY_AND_COMPANY-AR201102002351

PATIENT
  Age: 42 Year
  Sex: Female

DRUGS (3)
  1. PREGABALIN [Concomitant]
  2. CYMBALTA [Suspect]
     Indication: DEPRESSION
     Dosage: 60 MG, DAILY (1/D)
  3. CORTICOSTEROIDS [Concomitant]

REACTIONS (4)
  - VISION BLURRED [None]
  - CATARACT [None]
  - VISUAL ACUITY REDUCED [None]
  - NAUSEA [None]
